FAERS Safety Report 10156151 (Version 4)
Quarter: 2015Q1

REPORT INFORMATION
  Report Type: Report from Study
  Country: US (occurrence: US)
  Receive Date: 20140506
  Receipt Date: 20150128
  Transmission Date: 20150720
  Serious: Yes (Other)
  Sender: FDA-Public Use
  Company Number: US-ACTELION-A-NJ2014-98172

PATIENT
  Age: 38 Year
  Sex: Female
  Weight: 92.97 kg

DRUGS (3)
  1. PRENATAL [Concomitant]
     Active Substance: VITAMINS
     Dosage: UNK
     Dates: start: 201404
  2. TRACLEER [Suspect]
     Active Substance: BOSENTAN\BOSENTAN MONOHYDRATE
     Indication: PULMONARY ARTERIAL HYPERTENSION
     Dosage: 125 MG, BID
     Route: 048
     Dates: start: 200612, end: 201404
  3. SILDENAFIL. [Concomitant]
     Active Substance: SILDENAFIL
     Dosage: UNK
     Dates: start: 200905

REACTIONS (2)
  - Pregnancy [Not Recovered/Not Resolved]
  - Abortion spontaneous [Unknown]

NARRATIVE: CASE EVENT DATE: 20140423
